FAERS Safety Report 15602788 (Version 1)
Quarter: 2018Q4

REPORT INFORMATION
  Report Type: Spontaneous
  Country: JP (occurrence: JP)
  Receive Date: 20181109
  Receipt Date: 20181109
  Transmission Date: 20190205
  Serious: Yes (Other)
  Sender: FDA-Public Use
  Company Number: JP-PFIZER INC-2018454547

PATIENT
  Age: 70 Year
  Sex: Female

DRUGS (1)
  1. CEFTRIAXONE SODIUM 1G PFIZER [Suspect]
     Active Substance: CEFTRIAXONE SODIUM
     Dosage: 2 G, DAILY
     Route: 041
     Dates: start: 20181018, end: 20181026

REACTIONS (2)
  - Altered state of consciousness [Recovered/Resolved]
  - Delirium [Unknown]

NARRATIVE: CASE EVENT DATE: 20181026
